FAERS Safety Report 5252997-8 (Version None)
Quarter: 2007Q1

REPORT INFORMATION
  Report Type: 
  Country: None (occurrence: None)
  Receive Date: 20070301
  Receipt Date: 20070220
  Transmission Date: 20070707
  Serious: Yes (Other)
  Sender: FDA-Public Use
  Company Number: US-ROCHE-483670

PATIENT
  Sex: Male

DRUGS (1)
  1. ACCUTANE [Suspect]
     Indication: DRUG USE FOR UNKNOWN INDICATION
     Route: 048

REACTIONS (12)
  - ANAEMIA [None]
  - ANOREXIA [None]
  - ASCITES [None]
  - CHRONIC HEPATITIS [None]
  - CROHN'S DISEASE [None]
  - FATIGUE [None]
  - HEPATIC CIRRHOSIS [None]
  - HEPATIC FAILURE [None]
  - INFLAMMATORY BOWEL DISEASE [None]
  - JAUNDICE [None]
  - RENAL FAILURE ACUTE [None]
  - THROMBOCYTOPENIA [None]
